FAERS Safety Report 7737533-6 (Version None)
Quarter: 2011Q3

REPORT INFORMATION
  Report Type: 
  Country: None (occurrence: None)
  Receive Date: 20110902
  Receipt Date: 20110824
  Transmission Date: 20111222
  Serious: Yes (Hospitalization)
  Sender: FDA-Public Use
  Company Number: 2011MA012547

PATIENT
  Age: 79 Year
  Sex: Female

DRUGS (3)
  1. NAPROXEN [Suspect]
     Indication: OSTEOARTHRITIS
     Dosage: 275 MG; QD
  2. PIROXICAM [Suspect]
     Indication: OSTEOARTHRITIS
     Dosage: 20 MG; QD
  3. DICLOFENAC SODIUM [Suspect]
     Indication: OSTEOARTHRITIS
     Dosage: 25 MG; QD

REACTIONS (6)
  - INTESTINAL DIAPHRAGM DISEASE [None]
  - ILEAL STENOSIS [None]
  - HAEMOGLOBIN DECREASED [None]
  - HAEMATOCHEZIA [None]
  - JEJUNAL STENOSIS [None]
  - INTESTINAL ULCER [None]
